FAERS Safety Report 5602076-2 (Version None)
Quarter: 2008Q1

REPORT INFORMATION
  Report Type: 
  Country: None (occurrence: None)
  Receive Date: 20080122
  Receipt Date: 20080122
  Transmission Date: 20080703
  Serious: No
  Sender: FDA-Public Use
  Company Number: None

PATIENT
  Sex: Female

DRUGS (2)
  1. OXYCODONE   10/325 [Suspect]
     Indication: INTERVERTEBRAL DISC DEGENERATION
     Dosage: ONE TABLET   EVERY 6-8 HOURS  PO (DURATION: APPROXIMATELY A MONTH?)
     Route: 048
  2. OXYCODONE   10/325 [Suspect]
     Indication: OSTEOARTHRITIS
     Dosage: ONE TABLET   EVERY 6-8 HOURS  PO (DURATION: APPROXIMATELY A MONTH?)
     Route: 048

REACTIONS (6)
  - DIARRHOEA [None]
  - GASTROOESOPHAGEAL REFLUX DISEASE [None]
  - NAUSEA [None]
  - PAIN [None]
  - PHARMACEUTICAL PRODUCT COMPLAINT [None]
  - VOMITING [None]
